FAERS Safety Report 21735515 (Version 4)
Quarter: 2023Q1

REPORT INFORMATION
  Report Type: Report from Study
  Country: DE (occurrence: DE)
  Receive Date: 20221215
  Receipt Date: 20230328
  Transmission Date: 20230418
  Serious: Yes (Hospitalization, Other)
  Sender: FDA-Public Use
  Company Number: DE-BRISTOL-MYERS SQUIBB COMPANY-2022-147398

PATIENT
  Age: 68 Year
  Sex: Male
  Weight: 95 kg

DRUGS (7)
  1. VAXZEVRIA [Concomitant]
     Active Substance: AZD-1222
     Indication: Prophylaxis
     Route: 058
     Dates: start: 20210505
  2. VAXZEVRIA [Concomitant]
     Active Substance: AZD-1222
     Route: 058
     Dates: start: 20210728
  3. SPIKEVAX [Concomitant]
     Active Substance: ELASOMERAN
     Indication: Prophylaxis
     Route: 058
     Dates: start: 20211218
  4. COMIRNATY [Concomitant]
     Active Substance: TOZINAMERAN
     Indication: Prophylaxis
     Route: 058
     Dates: start: 20220420
  5. PROPRANOLOL HYDROCHLORIDE [Concomitant]
     Active Substance: PROPRANOLOL HYDROCHLORIDE
     Indication: Product used for unknown indication
     Route: 048
     Dates: start: 2014
  6. METFORMIN [Concomitant]
     Active Substance: METFORMIN HYDROCHLORIDE
     Indication: Product used for unknown indication
     Route: 048
     Dates: start: 2014
  7. PANTOPRAZOLE [Concomitant]
     Active Substance: PANTOPRAZOLE
     Indication: Prophylaxis
     Route: 048
     Dates: start: 2014

REACTIONS (3)
  - Autoimmune myositis [Not Recovered/Not Resolved]
  - Autoimmune myocarditis [Not Recovered/Not Resolved]
  - Blood creatine phosphokinase increased [Recovered/Resolved]

NARRATIVE: CASE EVENT DATE: 20221129
